FAERS Safety Report 6786748-2 (Version None)
Quarter: 2010Q2

REPORT INFORMATION
  Report Type: 
  Country: None (occurrence: None)
  Receive Date: 20100623
  Receipt Date: 20100611
  Transmission Date: 20101027
  Serious: Yes (Hospitalization)
  Sender: FDA-Public Use
  Company Number: US-ELI_LILLY_AND_COMPANY-US201006004990

PATIENT
  Sex: Female

DRUGS (5)
  1. FORTEO [Suspect]
     Indication: OSTEOPOROSIS
     Dosage: 20 UG, DAILY (1/D)
     Dates: end: 20100603
  2. ALLOPURINOL [Concomitant]
     Dosage: 100 MG, DAILY (1/D)
  3. FLUOXETINE HYDROCHLORIDE [Concomitant]
     Dosage: 10 MG, DAILY (1/D)
  4. NIFEDICAL [Concomitant]
     Dosage: 60 MG, DAILY (1/D)
  5. SYNTHROID [Concomitant]
     Dosage: 25 MG, DAILY (1/D)

REACTIONS (1)
  - URINARY TRACT INFECTION [None]
